FAERS Safety Report 12193964 (Version 1)
Quarter: 2016Q1

REPORT INFORMATION
  Report Type: Spontaneous
  Country: US (occurrence: US)
  Receive Date: 20160321
  Receipt Date: 20160321
  Transmission Date: 20160526
  Serious: Yes (Other)
  Sender: FDA-Public Use
  Company Number: US-BEH-2016060167

PATIENT
  Age: 12 Year
  Sex: Female
  Weight: 65 kg

DRUGS (27)
  1. NYSTATIN. [Concomitant]
     Active Substance: NYSTATIN
  2. AMMONIUM LACTATE. [Concomitant]
     Active Substance: AMMONIUM LACTATE
  3. VALIUM [Concomitant]
     Active Substance: DIAZEPAM
  4. REMICADE [Concomitant]
     Active Substance: INFLIXIMAB
  5. DEXTROSE. [Concomitant]
     Active Substance: DEXTROSE
  6. DEXAMETHASONE. [Concomitant]
     Active Substance: DEXAMETHASONE
  7. HYDROXYZINE [Concomitant]
     Active Substance: HYDROXYZINE\HYDROXYZINE HYDROCHLORIDE
  8. FOLIC ACID. [Concomitant]
     Active Substance: FOLIC ACID
  9. DIFLUCAN [Concomitant]
     Active Substance: FLUCONAZOLE
  10. VANICREAM LITE LOTION [Concomitant]
  11. HYDROCORT-PRAMOXINE [Concomitant]
  12. PREDNISONE. [Concomitant]
     Active Substance: PREDNISONE
  13. DIPHENHYDRAMINE. [Concomitant]
     Active Substance: DIPHENHYDRAMINE
  14. EPIPEN [Concomitant]
     Active Substance: EPINEPHRINE
  15. HEPARIN [Concomitant]
     Active Substance: HEPARIN SODIUM
  16. SODIUM CHLORIDE. [Concomitant]
     Active Substance: SODIUM CHLORIDE
  17. SOLU-MEDROL [Concomitant]
     Active Substance: METHYLPREDNISOLONE SODIUM SUCCINATE
  18. ZOFRAN [Concomitant]
     Active Substance: ONDANSETRON HYDROCHLORIDE
  19. PRAMOXINE [Concomitant]
     Active Substance: PRAMOXINE
  20. NEXIUM [Concomitant]
     Active Substance: ESOMEPRAZOLE MAGNESIUM
  21. TRAMADOL. [Concomitant]
     Active Substance: TRAMADOL
  22. PLAQUENIL [Concomitant]
     Active Substance: HYDROXYCHLOROQUINE SULFATE
  23. L-M-X [Concomitant]
  24. METHOTREXATE [Concomitant]
     Active Substance: METHOTREXATE
  25. PREVACID [Concomitant]
     Active Substance: LANSOPRAZOLE
  26. PRIVIGEN [Suspect]
     Active Substance: HUMAN IMMUNOGLOBULIN G
     Indication: DERMATOMYOSITIS
     Route: 042
  27. ACETAMINOPHEN. [Concomitant]
     Active Substance: ACETAMINOPHEN

REACTIONS (1)
  - Central venous catheterisation [Recovered/Resolved]

NARRATIVE: CASE EVENT DATE: 20160307
